FAERS Safety Report 12307164 (Version 1)
Quarter: 2016Q2

REPORT INFORMATION
  Report Type: Spontaneous
  Country: US (occurrence: US)
  Receive Date: 20160426
  Receipt Date: 20160426
  Transmission Date: 20160815
  Serious: No
  Sender: FDA-Public Use
  Company Number: US-ALKERMES INC.-ALK-2015-000029

PATIENT

DRUGS (3)
  1. VIVITROL [Suspect]
     Active Substance: NALTREXONE
     Indication: ALCOHOLISM
     Dosage: 380 MG, QMO
     Route: 030
     Dates: start: 20150511
  2. NALTREXONE [Suspect]
     Active Substance: NALTREXONE
     Indication: ALCOHOLISM
     Route: 048
  3. ANTIHYPERTENSIVES [Concomitant]
     Active Substance: UNSPECIFIED INGREDIENT
     Indication: BLOOD PRESSURE INCREASED
     Dosage: UNK

REACTIONS (1)
  - Rash pustular [Not Recovered/Not Resolved]

NARRATIVE: CASE EVENT DATE: 201505
